FAERS Safety Report 9379693 (Version 1)
Quarter: 2013Q2

REPORT INFORMATION
  Report Type: Spontaneous
  Country: AU (occurrence: None)
  Receive Date: 20130627
  Receipt Date: 20130627
  Transmission Date: 20140414
  Serious: Yes (Other)
  Sender: FDA-Public Use
  Company Number: 2013P1008720

PATIENT
  Age: 40 Year
  Sex: Female

DRUGS (2)
  1. AMPHETAMINE [Suspect]
     Indication: SUBSTANCE ABUSE
     Route: 042
  2. NICOTINE [Suspect]

REACTIONS (5)
  - Premature separation of placenta [None]
  - Caesarean section [None]
  - Maternal drugs affecting foetus [None]
  - Foetal hypokinesia [None]
  - Vaginal haemorrhage [None]
